FAERS Safety Report 6966795-8 (Version None)
Quarter: 2010Q3

REPORT INFORMATION
  Report Type: 
  Country: None (occurrence: None)
  Receive Date: 20100906
  Receipt Date: 20100823
  Transmission Date: 20110219
  Serious: Yes (Hospitalization, Other)
  Sender: FDA-Public Use
  Company Number: PHFR2010GB01783

PATIENT
  Sex: Male

DRUGS (2)
  1. TEGRETOL [Suspect]
     Indication: EPILEPSY
     Dosage: 200MG MANE, 400MG NOCTE
     Route: 048
  2. TEGRETOL [Suspect]
     Dosage: 600MG MANE, 600MG NOCTE

REACTIONS (3)
  - AMNESIA [None]
  - BRAIN INJURY [None]
  - EPILEPSY [None]
